FAERS Safety Report 7580325-1 (Version None)
Quarter: 2011Q2

REPORT INFORMATION
  Report Type: 
  Country: None (occurrence: None)
  Receive Date: 20110629
  Receipt Date: 20110616
  Transmission Date: 20111010
  Serious: Yes (Hospitalization)
  Sender: FDA-Public Use
  Company Number: DE-ROCHE-762556

PATIENT
  Sex: Female

DRUGS (3)
  1. ACETAMINOPHEN [Concomitant]
     Dosage: EVERY 5-6 HOURS ALTERNATELY WITH IBUPROFEN
     Dates: start: 20110204
  2. TAMIFLU [Suspect]
     Indication: INFLUENZA
     Dosage: GIVEN ONLY ONCE
     Route: 048
     Dates: start: 20110205, end: 20110205
  3. IBUPROFEN [Concomitant]
     Dosage: EVERY 5-6 HOURS ALTERNATELY WITH PARACETAMOL
     Dates: start: 20110204

REACTIONS (1)
  - ALTERED STATE OF CONSCIOUSNESS [None]
